FAERS Safety Report 4733231-1 (Version None)
Quarter: 2005Q3

REPORT INFORMATION
  Report Type: 
  Country: None (occurrence: None)
  Receive Date: 20050721
  Receipt Date: 20050518
  Transmission Date: 20060218
  Serious: No
  Sender: FDA-Public Use
  Company Number: 2005SP000876

PATIENT
  Age: 73 Year
  Sex: Male
  Weight: 90.7194 kg

DRUGS (4)
  1. LUNESTA [Suspect]
     Indication: INSOMNIA
     Dosage: SEE IMAGE
     Route: 048
     Dates: start: 20050101
  2. LUNESTA [Suspect]
     Indication: INSOMNIA
     Dosage: SEE IMAGE
     Route: 048
     Dates: start: 20050517
  3. GEODON [Concomitant]
  4. MIRTAZAPINE [Concomitant]

REACTIONS (2)
  - DRUG INEFFECTIVE [None]
  - INSOMNIA [None]
